FAERS Safety Report 9501524 (Version 1)
Quarter: 2013Q1

REPORT INFORMATION
  Report Type: Spontaneous
  Country: US (occurrence: None)
  Receive Date: 20130107
  Receipt Date: 20130107
  Transmission Date: 20140127
  Serious: Yes (Other)
  Sender: FDA-Public Use
  Company Number: PHEH2012US021262

PATIENT
  Age: 54 Year
  Sex: Female

DRUGS (2)
  1. GILENYA (FINGOLIMOD) CAPSULE, 0.5MG [Suspect]
     Indication: MULTIPLE SCLEROSIS
     Route: 048
     Dates: start: 20121015, end: 20121015
  2. PREMARIN (ESTROGENS CONJUGATED) [Concomitant]

REACTIONS (3)
  - Heart rate decreased [None]
  - Dyspnoea [None]
  - Blood pressure diastolic decreased [None]
